FAERS Safety Report 4995189-X (Version None)
Quarter: 2006Q2

REPORT INFORMATION
  Report Type: 
  Country: None (occurrence: None)
  Receive Date: 20060508
  Receipt Date: 20051031
  Transmission Date: 20061013
  Serious: Yes (Death, Hospitalization, Disabling)
  Sender: FDA-Public Use
  Company Number: US-MERCK-0511USA00084

PATIENT
  Age: 50 Year
  Sex: Female
  Weight: 91 kg

DRUGS (5)
  1. VIOXX [Suspect]
     Indication: ARTHRALGIA
     Route: 048
     Dates: start: 19990630, end: 20030201
  2. VIOXX [Suspect]
     Route: 048
     Dates: start: 19990630, end: 20030201
  3. VIOXX [Suspect]
     Indication: ROTATOR CUFF SYNDROME
     Route: 048
     Dates: start: 19990630, end: 20030201
  4. VIOXX [Suspect]
     Route: 048
     Dates: start: 19990630, end: 20030201
  5. CLIMARA [Concomitant]
     Indication: MENOPAUSE
     Route: 065

REACTIONS (31)
  - ANXIETY [None]
  - ASTHMA [None]
  - BLOOD CHOLESTEROL INCREASED [None]
  - BRADYCARDIA [None]
  - CARDIAC ARREST [None]
  - CARDIAC FAILURE CONGESTIVE [None]
  - CHRONIC FATIGUE SYNDROME [None]
  - CHRONIC OBSTRUCTIVE PULMONARY DISEASE [None]
  - CONVULSION [None]
  - CORONARY ARTERY DISEASE [None]
  - DEPRESSION [None]
  - FIBROMYALGIA [None]
  - GASTRIC DISORDER [None]
  - GASTROOESOPHAGEAL REFLUX DISEASE [None]
  - HYPERTENSION [None]
  - HYSTERECTOMY [None]
  - INSOMNIA [None]
  - ISCHAEMIC CARDIOMYOPATHY [None]
  - MYOCARDIAL INFARCTION [None]
  - OEDEMA PERIPHERAL [None]
  - PERIPHERAL VASCULAR DISORDER [None]
  - PNEUMONIA [None]
  - POLYTRAUMATISM [None]
  - ROAD TRAFFIC ACCIDENT [None]
  - SHOULDER PAIN [None]
  - SPLEEN DISORDER [None]
  - SPLENECTOMY [None]
  - THERAPY NON-RESPONDER [None]
  - UPPER RESPIRATORY TRACT CONGESTION [None]
  - UTERINE DISORDER [None]
  - VENTRICULAR TACHYCARDIA [None]
